FAERS Safety Report 9717680 (Version 1)
Quarter: 2013Q4

REPORT INFORMATION
  Report Type: Spontaneous
  Country: GB (occurrence: GB)
  Receive Date: 20131127
  Receipt Date: 20131127
  Transmission Date: 20140711
  Serious: Yes (Other)
  Sender: FDA-Public Use
  Company Number: GB-WATSON-2013-21793

PATIENT
  Age: 82 Year
  Sex: Female

DRUGS (4)
  1. FLUOXETINE (UNKNOWN) [Suspect]
     Indication: DEPRESSION
     Dosage: 20 MG, UNKNOWN; WAS RECENTLY INCREASED FROM 20 MG TO 30 MG. PREVIOUSLY ON 40 MG
     Route: 048
  2. FLUOXETINE (UNKNOWN) [Suspect]
     Dosage: 30 MG, UNKNOWN; WAS RECENTLY INCREASED FROM 20 MG TO 30 MG. PREVIOUSLY ON 40 MG
     Route: 048
  3. FLUOXETINE (UNKNOWN) [Suspect]
     Dosage: 40 MG, UNKNOWN; WAS RECENTLY INCREASED FROM 20 MG TO 30 MG. PREVIOUSLY ON 40 MG.
     Route: 048
  4. HALDOL /00027402/ [Suspect]
     Indication: BIPOLAR DISORDER
     Dosage: 25 MG, 1/ 4 WEEKS
     Route: 030

REACTIONS (2)
  - Orthostatic hypotension [Recovering/Resolving]
  - Dizziness [Unknown]
